FAERS Safety Report 12477357 (Version 1)
Quarter: 2016Q2

REPORT INFORMATION
  Report Type: Spontaneous
  Country: AT (occurrence: AT)
  Receive Date: 20160617
  Receipt Date: 20160617
  Transmission Date: 20160815
  Serious: Yes (Other)
  Sender: FDA-Public Use
  Company Number: AT-ASTRAZENECA-2016SE62272

PATIENT
  Age: 42 Year
  Sex: Female

DRUGS (7)
  1. GLADEM [Suspect]
     Active Substance: SERTRALINE HYDROCHLORIDE
     Dosage: DALIY DOSE 100
     Route: 065
     Dates: start: 2014
  2. VIMPAT [Suspect]
     Active Substance: LACOSAMIDE
     Indication: EPILEPSY
     Dosage: DALIY DOSE 200
     Route: 065
     Dates: start: 2008
  3. SEROQUEL [Suspect]
     Active Substance: QUETIAPINE FUMARATE
     Dosage: DALIY DOSE 100
     Route: 048
     Dates: start: 201505, end: 201604
  4. SEROQUEL [Suspect]
     Active Substance: QUETIAPINE FUMARATE
     Dosage: DALIY DOSE 25
     Route: 048
     Dates: start: 2014, end: 201505
  5. SEROQUEL [Suspect]
     Active Substance: QUETIAPINE FUMARATE
     Dosage: DALIY DOSE 50
     Route: 048
     Dates: start: 201604
  6. TRILEPTAL [Suspect]
     Active Substance: OXCARBAZEPINE
     Indication: EPILEPSY
     Dosage: DALIY DOSE 900
     Route: 065
     Dates: start: 2000
  7. TRITTICO [Suspect]
     Active Substance: TRAZODONE HYDROCHLORIDE
     Dosage: DALIY DOSE 150
     Route: 065
     Dates: start: 2014

REACTIONS (1)
  - Weight increased [Not Recovered/Not Resolved]

NARRATIVE: CASE EVENT DATE: 201505
